FAERS Safety Report 6013747-0 (Version None)
Quarter: 2008Q4

REPORT INFORMATION
  Report Type: 
  Country: None (occurrence: None)
  Receive Date: 20081219
  Receipt Date: 20081212
  Transmission Date: 20090506
  Serious: Yes (Other)
  Sender: FDA-Public Use
  Company Number: B0548896A

PATIENT
  Age: 2 Year
  Sex: Female

DRUGS (1)
  1. CEFUROXIME [Suspect]
     Indication: LOWER RESPIRATORY TRACT INFECTION
     Dosage: 250MG TWICE PER DAY
     Route: 048
     Dates: start: 20081015, end: 20081020

REACTIONS (2)
  - PSYCHOMOTOR HYPERACTIVITY [None]
  - RESTLESSNESS [None]
